FAERS Safety Report 10100945 (Version 1)
Quarter: 2014Q2

REPORT INFORMATION
  Report Type: Spontaneous
  Country: US (occurrence: US)
  Receive Date: 20140424
  Receipt Date: 20140424
  Transmission Date: 20141212
  Serious: No
  Sender: FDA-Public Use
  Company Number: US-009507513-1404USA010680

PATIENT
  Sex: Female

DRUGS (4)
  1. CLARITIN CHEWABLE TABLETS [Suspect]
     Indication: HYPERSENSITIVITY
     Dosage: 5 MG, PRN
     Route: 048
  2. CLARITIN CHEWABLE TABLETS [Suspect]
     Indication: RHINORRHOEA
  3. CLARITIN CHEWABLE TABLETS [Suspect]
     Indication: SNEEZING
  4. CLARITIN CHEWABLE TABLETS [Suspect]
     Indication: COUGH

REACTIONS (1)
  - Drug effect decreased [Unknown]
